FAERS Safety Report 9449050 (Version 1)
Quarter: 2013Q3

REPORT INFORMATION
  Report Type: Spontaneous
  Country: US (occurrence: US)
  Receive Date: 20130808
  Receipt Date: 20130808
  Transmission Date: 20140515
  Serious: Yes (Life-Threatening)
  Sender: FDA-Public Use
  Company Number: GXBR2013US001385

PATIENT
  Sex: Female

DRUGS (7)
  1. INFUVITE ADULT [Suspect]
     Indication: MALNUTRITION
     Dosage: UNK DF, UNK
     Dates: start: 20130705, end: 20130711
  2. INFUVITE ADULT [Suspect]
     Dosage: UNK DF, UNK
  3. TPN /07403901/ [Suspect]
     Indication: MALNUTRITION
     Dosage: UNK DF, UNK
     Dates: start: 201306
  4. ZENPEP [Concomitant]
     Dosage: UNK DF, UNK
  5. MILK OF MAGNESIA [Concomitant]
     Dosage: 60 MG, UNK
  6. PHENERGAN ^AVENTIS PHARMA^ [Concomitant]
     Dosage: UNK DF, PRN
  7. ZOFRAN [Concomitant]
     Dosage: UNK DF, PRN

REACTIONS (7)
  - Feeling abnormal [Recovered/Resolved]
  - Urticaria [Recovered/Resolved]
  - Tremor [Recovered/Resolved]
  - Dyspnoea [Recovered/Resolved]
  - Infusion related reaction [Recovered/Resolved]
  - Pruritus [Recovered/Resolved]
  - Gastrointestinal disorder [Recovering/Resolving]
